FAERS Safety Report 18593861 (Version 1)
Quarter: 2020Q4

REPORT INFORMATION
  Report Type: Spontaneous
  Country: US (occurrence: US)
  Receive Date: 20201209
  Receipt Date: 20201209
  Transmission Date: 20210114
  Serious: No
  Sender: FDA-Public Use
  Company Number: NVSC2020US327497

PATIENT
  Sex: Female

DRUGS (1)
  1. METHAZOLAMIDE. [Suspect]
     Active Substance: METHAZOLAMIDE
     Indication: PRODUCT USED FOR UNKNOWN INDICATION
     Dosage: 1 DF, QD
     Route: 065

REACTIONS (5)
  - Tinnitus [Unknown]
  - Fatigue [Unknown]
  - Dizziness [Unknown]
  - Epistaxis [Unknown]
  - Disturbance in attention [Unknown]
